FAERS Safety Report 11283063 (Version 1)
Quarter: 2015Q3

REPORT INFORMATION
  Report Type: Spontaneous
  Country: US (occurrence: None)
  Receive Date: 20150717
  Receipt Date: 20150717
  Transmission Date: 20151125
  Serious: Yes (Other)
  Sender: FDA-Public Use
  Company Number: None

PATIENT
  Age: 77 Year
  Sex: Male
  Weight: 80.02 kg

DRUGS (8)
  1. PHENYLEPHRINE 2.5% (AKORN) [Concomitant]
  2. HEALON GV (AMO) [Concomitant]
  3. XYLOCAINE 2% [Concomitant]
  4. PHACO HANDLE AND TIP (AMO) [Concomitant]
  5. BGETADINE OPHTHALMIC SOLUTION [Concomitant]
  6. BSS-PLUS IRRIGATING SOLUTION (ALCON) [Concomitant]
  7. BSS-PLUS ADMINISTRATION SET (ALCON) [Concomitant]
  8. BSS PLUS [Suspect]
     Active Substance: CALCIUM CHLORIDE\DEXTROSE\MAGNESIUM CHLORIDE\OXIGLUTATIONE\POTASSIUM CHLORIDE\SODIUM BICARBONATE\SODIUM CHLORIDE\SODIUM PHOSPHATE\SODIUM PHOSPHATE, DIBASIC

REACTIONS (1)
  - Toxic anterior segment syndrome [None]

NARRATIVE: CASE EVENT DATE: 20150616
